FAERS Safety Report 6564503-6 (Version None)
Quarter: 2010Q1

REPORT INFORMATION
  Report Type: 
  Country: None (occurrence: None)
  Receive Date: 20100201
  Receipt Date: 20100119
  Transmission Date: 20100710
  Serious: Yes (Hospitalization, Other)
  Sender: FDA-Public Use
  Company Number: US-ELI_LILLY_AND_COMPANY-US201001004184

PATIENT
  Sex: Male

DRUGS (1)
  1. EVISTA [Suspect]
     Dosage: 60 MG, DAILY (1/D)
     Route: 065

REACTIONS (4)
  - ARTHRALGIA [None]
  - FALL [None]
  - MUSCULOSKELETAL PAIN [None]
  - UPPER LIMB FRACTURE [None]
